FAERS Safety Report 8479859-7 (Version None)
Quarter: 2012Q2

REPORT INFORMATION
  Report Type: 
  Country: None (occurrence: None)
  Receive Date: 20120629
  Receipt Date: 20120619
  Transmission Date: 20120825
  Serious: Yes (Death, Life-Threatening, Hospitalization, Other)
  Sender: FDA-Public Use
  Company Number: US-MYLANLABS-2010AC000487

PATIENT
  Age: 56 Year
  Sex: Female

DRUGS (61)
  1. LOPRESSOR [Concomitant]
  2. PERCOCET [Concomitant]
     Dosage: 1 TO 2 TABLETS AS NEEDED
  3. POTASSIUM CHLORIDE [Concomitant]
  4. FUROSEMIDE [Concomitant]
  5. GLYBURIDE [Concomitant]
  6. ALBUTEROL [Concomitant]
  7. MEROPENEM [Concomitant]
  8. DIGOXIN [Suspect]
     Route: 048
     Dates: start: 20011128, end: 20080501
  9. CLARITIN /00413701/ [Concomitant]
  10. MICRO-K [Concomitant]
  11. TRAMADOL HCL [Concomitant]
  12. LEVAQUIN [Concomitant]
  13. NOVOLOG [Concomitant]
     Dosage: 70/30 24 UNITS
  14. ASPIRIN [Concomitant]
  15. CUBICIN [Concomitant]
  16. CEFEPIME [Concomitant]
     Route: 042
  17. DUONEB [Concomitant]
     Dosage: Q6H PRN
  18. PROTONIX [Concomitant]
  19. SYNTHROID [Concomitant]
  20. OXYGEN [Concomitant]
  21. CARVEDILOL [Concomitant]
  22. PRINIVIL [Concomitant]
  23. ZAROXOLYN [Concomitant]
  24. NEURONTIN [Concomitant]
  25. ZETIA [Concomitant]
  26. VITAMIN B-12 [Concomitant]
     Dosage: 1 TAB
  27. GABAPENTIN [Concomitant]
  28. ATROVENT [Concomitant]
  29. TIGECYCLINE [Concomitant]
     Route: 042
  30. CASPOFUNGIN ACETATE [Concomitant]
  31. ZOCOR [Concomitant]
  32. LASIX [Concomitant]
  33. LIPITOR [Concomitant]
  34. VYTORIN [Concomitant]
     Dosage: 10/20 MG
  35. LORATADINE [Concomitant]
  36. ASCORBIC ACID [Concomitant]
  37. CYANOCOBALAMIN [Concomitant]
  38. CALCIUM [Concomitant]
  39. ASPIRIN [Concomitant]
  40. AMARYL [Concomitant]
  41. LANTUS [Concomitant]
     Dosage: 45 UNITS
  42. GUAIFENESIN [Concomitant]
  43. GUAIACOL /00374101/ [Concomitant]
  44. SIMVASTATIN [Concomitant]
  45. NYSTATIN [Concomitant]
  46. ACETAMINOPHEN [Concomitant]
  47. COREG [Concomitant]
  48. METOLAZONE [Concomitant]
  49. FENTANYL-100 [Concomitant]
  50. ALBUTEROL SULFATE AND IPRATROPIUM BROMIDE [Concomitant]
  51. PANTOPRAZOLE [Concomitant]
  52. LORAZEPAM [Concomitant]
  53. METOPROLOL SUCCINATE [Concomitant]
  54. GLUCOTROL [Concomitant]
  55. CITRATE [Concomitant]
  56. AMIKACIN [Concomitant]
     Route: 042
  57. ALLEGRA [Concomitant]
  58. ATIVAN [Concomitant]
     Indication: AGITATION
     Dosage: 1MG Q12H PRN
     Route: 042
  59. DOPAMINE HCL [Concomitant]
  60. FISH OIL [Concomitant]
     Dosage: 1 TAB
  61. FLAGYL [Concomitant]

REACTIONS (100)
  - DEATH [None]
  - DILATATION VENTRICULAR [None]
  - HYPOGLYCAEMIA [None]
  - BLOOD POTASSIUM DECREASED [None]
  - RENAL FAILURE CHRONIC [None]
  - ELECTROCARDIOGRAM T WAVE ABNORMAL [None]
  - ABDOMINAL DISTENSION [None]
  - HYPERLIPIDAEMIA [None]
  - SKIN TURGOR DECREASED [None]
  - TOBACCO USER [None]
  - OXYGEN SUPPLEMENTATION [None]
  - LETHARGY [None]
  - HYPOXIC-ISCHAEMIC ENCEPHALOPATHY [None]
  - GASTROSTOMY TUBE INSERTION [None]
  - ESCHERICHIA SEPSIS [None]
  - INJURY [None]
  - CARDIAC FAILURE CONGESTIVE [None]
  - VENTRICULAR HYPOKINESIA [None]
  - INTERNATIONAL NORMALISED RATIO INCREASED [None]
  - GALLOP RHYTHM PRESENT [None]
  - HYPERBILIRUBINAEMIA [None]
  - HYPERTENSION [None]
  - MECHANICAL VENTILATION [None]
  - PSEUDOMONAL BACTERAEMIA [None]
  - GENERALISED OEDEMA [None]
  - OCCULT BLOOD POSITIVE [None]
  - SEPSIS [None]
  - SEPTIC SHOCK [None]
  - DYSPNOEA [None]
  - CHEST X-RAY ABNORMAL [None]
  - COAGULOPATHY [None]
  - BLOOD CULTURE POSITIVE [None]
  - PYREXIA [None]
  - CEREBRAL ATROPHY [None]
  - TREATMENT FAILURE [None]
  - ISCHAEMIC CARDIOMYOPATHY [None]
  - WEANING FAILURE [None]
  - CARDIAC MURMUR [None]
  - SUPRAVENTRICULAR EXTRASYSTOLES [None]
  - EJECTION FRACTION DECREASED [None]
  - IMPLANTABLE DEFIBRILLATOR INSERTION [None]
  - BRAIN NATRIURETIC PEPTIDE INCREASED [None]
  - OEDEMA PERIPHERAL [None]
  - PEDAL PULSE DECREASED [None]
  - DIET REFUSAL [None]
  - HYPOKALAEMIA [None]
  - VASOPRESSIVE THERAPY [None]
  - HAEMODIALYSIS [None]
  - ESCHERICHIA BACTERAEMIA [None]
  - ANTIBIOTIC THERAPY [None]
  - PLEURAL EFFUSION [None]
  - GASTROINTESTINAL HAEMORRHAGE [None]
  - MITRAL VALVE INCOMPETENCE [None]
  - RESPIRATORY ACIDOSIS [None]
  - TYPE 1 DIABETES MELLITUS [None]
  - VENTRICULAR TACHYCARDIA [None]
  - COMPUTERISED TOMOGRAM ABNORMAL [None]
  - METABOLIC ENCEPHALOPATHY [None]
  - RENAL FAILURE ACUTE [None]
  - TRACHEOSTOMY [None]
  - HYPOTENSION [None]
  - BRADYCARDIA [None]
  - BLOOD GLUCOSE DECREASED [None]
  - ILL-DEFINED DISORDER [None]
  - ACUTE PULMONARY OEDEMA [None]
  - MENTAL STATUS CHANGES [None]
  - ASTHENIA [None]
  - SLOW RESPONSE TO STIMULI [None]
  - RALES [None]
  - SINUS BRADYCARDIA [None]
  - SALIVARY HYPERSECRETION [None]
  - CARDIOGENIC SHOCK [None]
  - RESPIRATORY FAILURE [None]
  - ENDOTRACHEAL INTUBATION [None]
  - CARDIAC ARREST [None]
  - EXTUBATION [None]
  - PULSELESS ELECTRICAL ACTIVITY [None]
  - UNRESPONSIVE TO STIMULI [None]
  - SINUS TACHYCARDIA [None]
  - ARTERIOSCLEROSIS CORONARY ARTERY [None]
  - ECHOCARDIOGRAM ABNORMAL [None]
  - HAEMATOCHEZIA [None]
  - LABORATORY TEST ABNORMAL [None]
  - HYPERHIDROSIS [None]
  - PALLOR [None]
  - SUPPLEMENTATION THERAPY [None]
  - ASCITES [None]
  - SINUSITIS [None]
  - DILATATION ATRIAL [None]
  - PULMONARY HYPERTENSION [None]
  - INCREASED VISCOSITY OF BRONCHIAL SECRETION [None]
  - COLITIS ISCHAEMIC [None]
  - RHONCHI [None]
  - BUNDLE BRANCH BLOCK RIGHT [None]
  - ELECTROCARDIOGRAM ABNORMAL [None]
  - ANAEMIA [None]
  - PSEUDOMONAS INFECTION [None]
  - PAIN [None]
  - SPINAL OSTEOARTHRITIS [None]
  - DEPRESSED LEVEL OF CONSCIOUSNESS [None]
